FAERS Safety Report 5362912-4 (Version None)
Quarter: 2007Q2

REPORT INFORMATION
  Report Type: 
  Country: None (occurrence: None)
  Receive Date: 20070614
  Receipt Date: 20070604
  Transmission Date: 20071010
  Serious: Yes (Other)
  Sender: FDA-Public Use
  Company Number: B0474179A

PATIENT
  Age: 57 Year
  Sex: Female

DRUGS (8)
  1. MELPHALAN (FORMULATION UNKNOWN) (MELPHALAN) (GENERIC) [Suspect]
     Indication: CORD BLOOD TRANSPLANT THERAPY
     Dosage: 90 MG/M2 / PER DAY / INTRAVENOUS
     Route: 042
     Dates: start: 20060501
  2. FLUDARABINE PHOSPHATE [Suspect]
     Indication: CORD BLOOD TRANSPLANT THERAPY
     Dosage: 25 MG/M2 / PER DAY / INTRAVENOUS
     Route: 042
     Dates: start: 20060501
  3. TACROLIMUS [Concomitant]
  4. METHOTREXATE [Concomitant]
  5. COTRIM [Concomitant]
  6. FLUOROQUINOLONE [Concomitant]
  7. FLUCONAZOLE [Concomitant]
  8. ACYCLOVIR [Concomitant]

REACTIONS (5)
  - CYTOMEGALOVIRUS ANTIGEN POSITIVE [None]
  - FEBRILE NEUTROPENIA [None]
  - GASTROINTESTINAL TOXICITY [None]
  - HEPATOTOXICITY [None]
  - MUCOUS MEMBRANE DISORDER [None]
